FAERS Safety Report 23677301 (Version 1)
Quarter: 2024Q1

REPORT INFORMATION
  Report Type: Spontaneous
  Country: US (occurrence: None)
  Receive Date: 20240326
  Receipt Date: 20240326
  Transmission Date: 20240410
  Serious: Yes (Other)
  Sender: FDA-Public Use
  Company Number: None

PATIENT
  Age: 4 Year
  Sex: Male
  Weight: 16.3 kg

DRUGS (1)
  1. ALPROLIX [Suspect]
     Active Substance: EFTRENONACOG ALFA
     Indication: Factor IX deficiency
     Dosage: OTHER FREQUENCY : ONCE WEEKLY;?
     Route: 042
     Dates: start: 20210601

REACTIONS (2)
  - Rash erythematous [None]
  - Rash [None]

NARRATIVE: CASE EVENT DATE: 20240314
